FAERS Safety Report 15273317 (Version 3)
Quarter: 2018Q4

REPORT INFORMATION
  Report Type: Spontaneous
  Country: ES (occurrence: ES)
  Receive Date: 20180813
  Receipt Date: 20181003
  Transmission Date: 20190204
  Serious: Yes (Hospitalization, Other)
  Sender: FDA-Public Use
  Company Number: ES-SHIRE-ES201830271

PATIENT

DRUGS (6)
  1. HIBOR [Concomitant]
     Active Substance: BEMIPARIN SODIUM
     Indication: VENOUS THROMBOSIS
  2. FIRAZYR [Suspect]
     Active Substance: ICATIBANT ACETATE
     Indication: HEREDITARY ANGIOEDEMA
     Dosage: 30 MG, 1X/DAY:QD
     Route: 058
     Dates: start: 20171021, end: 20171021
  3. BERINERT [Concomitant]
     Active Substance: HUMAN C1-ESTERASE INHIBITOR
     Indication: ANGIOEDEMA
  4. BERINERT [Concomitant]
     Active Substance: HUMAN C1-ESTERASE INHIBITOR
     Indication: EYELID OEDEMA
  5. EUTIROX [Concomitant]
     Active Substance: LEVOTHYROXINE SODIUM
     Indication: HYPOTHYROIDISM
  6. AMCHAFIBRIN [Concomitant]
     Active Substance: TRANEXAMIC ACID
     Indication: VENOUS THROMBOSIS

REACTIONS (2)
  - Exposure during pregnancy [Unknown]
  - Caesarean section [Recovered/Resolved]

NARRATIVE: CASE EVENT DATE: 20180702
